FAERS Safety Report 9778321 (Version 1)
Quarter: 2013Q4

REPORT INFORMATION
  Report Type: Spontaneous
  Country: GB (occurrence: GB)
  Receive Date: 20131223
  Receipt Date: 20131223
  Transmission Date: 20140711
  Serious: Yes (Disabling)
  Sender: FDA-Public Use
  Company Number: GB-TEVA-451453ISR

PATIENT
  Age: 75 Year
  Sex: Male
  Weight: 109.3 kg

DRUGS (6)
  1. WARFARIN [Suspect]
     Dates: start: 20131113
  2. ASPIRIN [Concomitant]
     Dates: start: 20130905
  3. LISINOPRIL [Concomitant]
     Dates: start: 20130912
  4. VERAPAMIL HYDROCHLORIDE [Concomitant]
     Dates: start: 20131113
  5. NEDOCROMIL SODIUM [Concomitant]
     Dates: start: 20131115
  6. CLOPIDOGREL [Concomitant]
     Dates: start: 20131129

REACTIONS (2)
  - Exfoliative rash [Recovering/Resolving]
  - Dermatitis exfoliative [Unknown]
